FAERS Safety Report 5740208-6 (Version None)
Quarter: 2008Q2

REPORT INFORMATION
  Report Type: 
  Country: None (occurrence: None)
  Receive Date: 20080516
  Receipt Date: 20080507
  Transmission Date: 20081010
  Serious: Yes (Hospitalization)
  Sender: FDA-Public Use
  Company Number: DE-JNJFOC-20070102973

PATIENT
  Age: 71 Year
  Sex: Female
  Weight: 59 kg

DRUGS (15)
  1. REMICADE [Suspect]
     Route: 042
  2. REMICADE [Suspect]
     Route: 042
  3. REMICADE [Suspect]
     Route: 042
  4. REMICADE [Suspect]
     Indication: TEMPORAL ARTERITIS
     Route: 042
  5. REMICADE [Suspect]
     Indication: VASCULITIS
     Route: 042
  6. METHOTREXATE [Suspect]
     Indication: VASCULITIS
     Route: 065
  7. METHOTREXATE [Suspect]
     Indication: TEMPORAL ARTERITIS
     Dosage: 15-20 MG
     Route: 065
  8. FOLSAN [Concomitant]
     Route: 065
  9. DECORTIN H [Concomitant]
     Route: 065
  10. EUTHYROX [Concomitant]
     Route: 065
  11. ACTONEL [Concomitant]
     Route: 065
  12. ASPIRIN [Concomitant]
     Route: 065
  13. PLAVIX [Concomitant]
     Route: 065
  14. BISOPROLOL FUMARATE [Concomitant]
     Route: 065
  15. AUGMENTIN '125' [Concomitant]
     Dosage: 875/125
     Route: 065

REACTIONS (14)
  - DISSEMINATED TUBERCULOSIS [None]
  - ENCEPHALITIS [None]
  - ENTEROCOCCAL INFECTION [None]
  - HEPATIC ENZYME INCREASED [None]
  - MENINGITIS TUBERCULOUS [None]
  - NAUSEA [None]
  - PERONEAL NERVE PALSY [None]
  - PSYCHOTIC DISORDER [None]
  - SEPSIS [None]
  - TUBERCULOSIS OF CENTRAL NERVOUS SYSTEM [None]
  - URINARY TRACT INFECTION [None]
  - URTICARIA [None]
  - VASCULITIS [None]
  - VOMITING [None]
